FAERS Safety Report 8147788 (Version 3)
Quarter: 2013Q2

REPORT INFORMATION
  Report Type: Spontaneous
  Country: US (occurrence: US)
  Receive Date: 20110922
  Receipt Date: 20130619
  Transmission Date: 20140414
  Serious: Yes (Other)
  Sender: FDA-Public Use
  Company Number: US-ASTRAZENECA-2011SE34055

PATIENT
  Age: 59 Year
  Sex: Female

DRUGS (7)
  1. SEROQUEL [Suspect]
     Indication: BIPOLAR DISORDER
     Route: 048
  2. SEROQUEL [Suspect]
     Indication: BIPOLAR DISORDER
     Route: 048
  3. SEROQUEL [Suspect]
     Indication: BIPOLAR DISORDER
     Route: 048
  4. PRISTIQ [Concomitant]
  5. XANAX [Concomitant]
  6. PERCOCET [Concomitant]
  7. DEPAKOTE [Concomitant]

REACTIONS (9)
  - Suicidal ideation [Unknown]
  - Bipolar disorder [Unknown]
  - Bipolar disorder [Unknown]
  - Adjustment disorder with mixed anxiety and depressed mood [Unknown]
  - Mood swings [Unknown]
  - Disorientation [Unknown]
  - Nervousness [Unknown]
  - Adverse event [Not Recovered/Not Resolved]
  - Drug dose omission [Unknown]
